FAERS Safety Report 16096854 (Version 1)
Quarter: 2019Q1

REPORT INFORMATION
  Report Type: Report from Study
  Country: CZ (occurrence: CZ)
  Receive Date: 20190320
  Receipt Date: 20190320
  Transmission Date: 20190418
  Serious: Yes (Other)
  Sender: FDA-Public Use
  Company Number: CZ-SAMSUNG BIOEPIS-SB-2019-06285

PATIENT
  Age: 29 Year
  Sex: Female

DRUGS (1)
  1. FLIXABI [Suspect]
     Active Substance: INFLIXIMAB
     Indication: INFLAMMATORY BOWEL DISEASE
     Dosage: UNKNOWN
     Route: 065

REACTIONS (1)
  - Infusion site reaction [Recovered/Resolved]

NARRATIVE: CASE EVENT DATE: 20190222
